FAERS Safety Report 18784255 (Version 2)
Quarter: 2021Q1

REPORT INFORMATION
  Report Type: Spontaneous
  Country: US (occurrence: US)
  Receive Date: 20210126
  Receipt Date: 20210319
  Transmission Date: 20210419
  Serious: No
  Sender: FDA-Public Use
  Company Number: US-ASTRAZENECA-2021A004221

PATIENT
  Sex: Male
  Weight: 94.3 kg

DRUGS (1)
  1. BYDUREON BCISE [Suspect]
     Active Substance: EXENATIDE
     Dosage: 2.0MG/ML UNKNOWN
     Route: 065

REACTIONS (7)
  - Intentional device misuse [Unknown]
  - Anxiety [Unknown]
  - Diabetes mellitus [Unknown]
  - Product packaging quantity issue [Unknown]
  - Dyschromatopsia [Unknown]
  - Device delivery system issue [Unknown]
  - Device defective [Unknown]
